FAERS Safety Report 7770892-7 (Version None)
Quarter: 2011Q3

REPORT INFORMATION
  Report Type: 
  Country: None (occurrence: None)
  Receive Date: 20110922
  Receipt Date: 20110718
  Transmission Date: 20111222
  Serious: Yes (Other)
  Sender: FDA-Public Use
  Company Number: US-ASTRAZENECA-2009UW07847

PATIENT
  Age: 34 Year
  Sex: Female
  Weight: 127 kg

DRUGS (10)
  1. SEROQUEL [Suspect]
     Indication: BIPOLAR DISORDER
     Dosage: 100 MG TO 1200 MG
     Route: 048
     Dates: start: 20020729, end: 20030101
  2. KLONOPIN [Concomitant]
     Dates: start: 20020701
  3. ABILIFY [Concomitant]
  4. SEROQUEL [Suspect]
     Route: 048
     Dates: start: 20021101, end: 20050101
  5. GEODON [Concomitant]
  6. ZYPREXA [Concomitant]
     Dates: start: 20020701
  7. DESYREL [Concomitant]
  8. LUVOX [Concomitant]
     Dates: start: 20020701
  9. DEPAKOTE [Concomitant]
  10. CYMBALTA [Concomitant]

REACTIONS (2)
  - SUICIDE ATTEMPT [None]
  - TYPE 2 DIABETES MELLITUS [None]
